FAERS Safety Report 11130582 (Version 1)
Quarter: 2015Q2

REPORT INFORMATION
  Report Type: Spontaneous
  Country: HU (occurrence: HU)
  Receive Date: 20150522
  Receipt Date: 20150522
  Transmission Date: 20150821
  Serious: Yes (Other)
  Sender: FDA-Public Use
  Company Number: HU-TEVA-562474ISR

PATIENT
  Age: 17 Year
  Sex: Male

DRUGS (1)
  1. ISOTRETINOIN [Suspect]
     Active Substance: ISOTRETINOIN
     Indication: ACNE

REACTIONS (7)
  - Chest pain [Unknown]
  - Sacroiliitis [Unknown]
  - Ankylosing spondylitis [Unknown]
  - Pain in extremity [Unknown]
  - Arthralgia [Unknown]
  - Bone marrow oedema [Unknown]
  - Back pain [Unknown]
